FAERS Safety Report 22085925 (Version 2)
Quarter: 2023Q1

REPORT INFORMATION
  Report Type: Spontaneous
  Country: US (occurrence: US)
  Receive Date: 20230310
  Receipt Date: 20230327
  Transmission Date: 20230418
  Serious: Yes (Life-Threatening, Other)
  Sender: FDA-Public Use
  Company Number: US-BAYER-2023A028029

PATIENT
  Age: 38 Year
  Sex: Male

DRUGS (3)
  1. CORICIDIN HBP MAXIMUM STRENGTH COLD AND FLU DAY AND NIGHT [Suspect]
     Active Substance: ACETAMINOPHEN\DEXTROMETHORPHAN HYDROBROMIDE\DOXYLAMINE SUCCINATE\GUAIFENESIN
     Indication: Nasal congestion
     Dosage: 1 DF, ONCE
     Route: 048
     Dates: start: 20230227, end: 20230227
  2. ASPIRIN [Concomitant]
     Active Substance: ASPIRIN
     Route: 048
  3. CORTICOSTEROID NOS [Concomitant]
     Active Substance: CORTICOSTEROID NOS

REACTIONS (5)
  - Foreign body in gastrointestinal tract [Recovered/Resolved]
  - Cough [Recovered/Resolved]
  - Hyperhidrosis [Recovered/Resolved]
  - Muscle strain [None]
  - Product use complaint [None]

NARRATIVE: CASE EVENT DATE: 20230227
